FAERS Safety Report 4529359-1 (Version None)
Quarter: 2004Q4

REPORT INFORMATION
  Report Type: 
  Country: None (occurrence: None)
  Receive Date: 20041216
  Receipt Date: 20041206
  Transmission Date: 20050328
  Serious: Yes (Hospitalization)
  Sender: FDA-Public Use
  Company Number: JP-ABBOTT-04P-087-0282714-00

PATIENT
  Age: 87 Year
  Sex: Female

DRUGS (10)
  1. CLARITH [Suspect]
     Indication: BRONCHITIS ACUTE
     Route: 048
     Dates: start: 20040406, end: 20040409
  2. GATIFLOXACIN [Interacting]
     Indication: BRONCHITIS ACUTE
     Route: 048
     Dates: start: 20040408, end: 20040409
  3. SALMETEROL XINAFOATE [Concomitant]
     Indication: ASTHMA
     Route: 055
     Dates: start: 20031025
  4. BUDESONIDE [Concomitant]
     Indication: ASTHMA
     Route: 055
     Dates: start: 20021010
  5. SERRAPEPTASE [Concomitant]
     Indication: ASTHMA
     Route: 048
     Dates: start: 20031027
  6. BROMHEXINE HYDROCHLORIDE [Concomitant]
     Indication: ASTHMA
     Route: 048
     Dates: start: 20031027
  7. LOSARTAN POTASSIUM [Concomitant]
     Indication: HYPERTENSION
     Route: 048
     Dates: start: 20001116
  8. TICLOPIDINE HCL [Concomitant]
     Indication: CEREBROVASCULAR DISORDER
     Route: 048
     Dates: start: 20030222
  9. PREDNISOLONE [Concomitant]
     Indication: ASTHMA
     Route: 048
     Dates: start: 20040406
  10. DIGESTIVE ENZYME PREPARATIONS [Concomitant]
     Indication: DECREASED APPETITE
     Route: 048
     Dates: start: 20040405

REACTIONS (7)
  - ABASIA [None]
  - ASTHENIA [None]
  - CEREBRAL ATROPHY [None]
  - DEPRESSED LEVEL OF CONSCIOUSNESS [None]
  - DISORIENTATION [None]
  - DRUG INTERACTION [None]
  - LACUNAR INFARCTION [None]
